FAERS Safety Report 11783113 (Version 2)
Quarter: 2016Q1

REPORT INFORMATION
  Report Type: Report from Study
  Country: US (occurrence: US)
  Receive Date: 20151127
  Receipt Date: 20160113
  Transmission Date: 20160525
  Serious: Yes (Hospitalization)
  Sender: FDA-Public Use
  Company Number: US-BAYER-2015-445388

PATIENT
  Age: 62 Year
  Sex: Female
  Weight: 49.43 kg

DRUGS (7)
  1. ADEMPAS [Suspect]
     Active Substance: RIOCIGUAT
     Indication: PULMONARY ARTERIAL HYPERTENSION
     Dosage: 1 MG, TID
     Route: 048
  2. ADEMPAS [Suspect]
     Active Substance: RIOCIGUAT
     Indication: PULMONARY ARTERIAL HYPERTENSION
     Dosage: UNK
     Dates: start: 20150827
  3. ADEMPAS [Suspect]
     Active Substance: RIOCIGUAT
     Indication: PULMONARY ARTERIAL HYPERTENSION
     Dosage: 1 MG, TID
     Route: 048
  4. OPSUMIT [Concomitant]
     Active Substance: MACITENTAN
     Dosage: UNK
  5. ADEMPAS [Suspect]
     Active Substance: RIOCIGUAT
     Indication: PULMONARY ARTERIAL HYPERTENSION
     Dosage: 1 MG, TID
     Route: 048
  6. ADEMPAS [Suspect]
     Active Substance: RIOCIGUAT
     Indication: PULMONARY ARTERIAL HYPERTENSION
     Dosage: 0.5 MG, TID
     Route: 048
  7. VELETRI [Suspect]
     Active Substance: EPOPROSTENOL
     Dosage: UNK

REACTIONS (19)
  - Pyrexia [Unknown]
  - Disorientation [Unknown]
  - Asthenia [Unknown]
  - Hyponatraemia [Unknown]
  - Pneumonia [Unknown]
  - Blood electrolytes decreased [Unknown]
  - Blood sodium decreased [Unknown]
  - Joint swelling [Unknown]
  - Epistaxis [Unknown]
  - Visual acuity reduced [Unknown]
  - Pyrexia [Unknown]
  - Sepsis [Unknown]
  - Mouth haemorrhage [Unknown]
  - Oral infection [None]
  - Deep vein thrombosis [Unknown]
  - Device related infection [Recovering/Resolving]
  - Confusional state [Unknown]
  - Pyrexia [Unknown]
  - Catheter site pruritus [Unknown]

NARRATIVE: CASE EVENT DATE: 2015
